FAERS Safety Report 6579367-4 (Version None)
Quarter: 2010Q1

REPORT INFORMATION
  Report Type: 
  Country: None (occurrence: None)
  Receive Date: 20100212
  Receipt Date: 20100203
  Transmission Date: 20100710
  Serious: Yes (Hospitalization)
  Sender: FDA-Public Use
  Company Number: CH-ELI_LILLY_AND_COMPANY-CH201002002424

PATIENT
  Age: 44 Year
  Sex: Female

DRUGS (4)
  1. FLUCTINE [Suspect]
     Indication: BIPOLAR I DISORDER
     Dosage: 20 MG, DAILY (1/D) EACH MORNING
     Route: 048
     Dates: start: 20091201
  2. TRAMAL /GFR/ [Concomitant]
     Indication: PAIN
     Dosage: 150 MG, DAILY (1/D)
     Route: 048
     Dates: end: 20100123
  3. SEROQUEL [Concomitant]
     Indication: ANXIETY DISORDER
     Dosage: 25 MG, DAILY (1/D) AT 6PM
     Route: 048
     Dates: start: 20091201
  4. DALMADORM [Concomitant]
     Indication: INSOMNIA
     Dosage: 30 MG, DAILY (1/D) AT 10PM
     Route: 048
     Dates: start: 20091201

REACTIONS (6)
  - AGITATION [None]
  - BODY TEMPERATURE INCREASED [None]
  - CHEST DISCOMFORT [None]
  - CONFUSIONAL STATE [None]
  - HYPERREFLEXIA [None]
  - SEROTONIN SYNDROME [None]
